FAERS Safety Report 10332150 (Version 2)
Quarter: 2014Q3

REPORT INFORMATION
  Report Type: Spontaneous
  Country: US (occurrence: None)
  Receive Date: 20140714
  Receipt Date: 20140822
  Transmission Date: 20150326
  Serious: Yes (Life-Threatening, Hospitalization, Other)
  Sender: FDA-Public Use
  Company Number: 003-197

PATIENT
  Age: 71 Year
  Sex: Female

DRUGS (1)
  1. CROFAB [Suspect]
     Active Substance: CROTALIDAE POLYVALENT IMMUNE FAB (OVINE)
     Indication: SNAKE BITE
     Dosage: 2.1 VIALS TOTAL
     Dates: start: 20140628, end: 20140628

REACTIONS (10)
  - Dyspnoea [None]
  - Acidosis [None]
  - Respiratory failure [None]
  - Anaphylactic reaction [None]
  - Haemoglobin decreased [None]
  - Contusion [None]
  - Rash [None]
  - Swelling [None]
  - Hypertension [None]
  - Pain in extremity [None]

NARRATIVE: CASE EVENT DATE: 20140628
